FAERS Safety Report 25058736 (Version 1)
Quarter: 2025Q1

REPORT INFORMATION
  Report Type: Spontaneous
  Country: JP (occurrence: JP)
  Receive Date: 20250310
  Receipt Date: 20250310
  Transmission Date: 20250409
  Serious: Yes (Other)
  Sender: MERCK SHARP & DOHME LLC
  Company Number: JP-MSD-M2025-02061

PATIENT
  Age: 87 Year
  Sex: Female

DRUGS (1)
  1. LAGEVRIO [Suspect]
     Active Substance: MOLNUPIRAVIR
     Indication: COVID-19 treatment
     Dosage: DOSE DESCRIPTION : 800 MILLIGRAM, BID?DAILY DOSE : 1600 MILLIGRAM?REGIMEN DOSE : 6400  MILLIGRAM
     Route: 048
     Dates: start: 20250118, end: 20250121

REACTIONS (1)
  - Hallucination [Recovered/Resolved]

NARRATIVE: CASE EVENT DATE: 20250101
